FAERS Safety Report 9506762 (Version 2)
Quarter: 2014Q1

REPORT INFORMATION
  Report Type: Spontaneous
  Country: AR (occurrence: AR)
  Receive Date: 20130909
  Receipt Date: 20140108
  Transmission Date: 20141002
  Serious: Yes (Other)
  Sender: FDA-Public Use
  Company Number: AR-AMGEN-ARGSP2013062673

PATIENT
  Age: 74 Year
  Sex: Female

DRUGS (3)
  1. ENBREL [Suspect]
     Indication: RHEUMATOID ARTHRITIS
     Dosage: 50 MG, WEEKLY
     Route: 065
     Dates: start: 20090715, end: 201211
  2. ARTRAIT                            /00113802/ [Concomitant]
     Dosage: 20 MG, WEEKLY
  3. DICLOFENAC [Concomitant]
     Dosage: UNK

REACTIONS (2)
  - Pneumonitis [Unknown]
  - Pneumonia [Recovered/Resolved]
